FAERS Safety Report 20794635 (Version 2)
Quarter: 2023Q2

REPORT INFORMATION
  Report Type: Spontaneous
  Country: US (occurrence: US)
  Receive Date: 20220506
  Receipt Date: 20230531
  Transmission Date: 20230722
  Serious: No
  Sender: FDA-Public Use
  Company Number: US-UCBSA-2021046585

PATIENT
  Sex: Female
  Weight: 75.737 kg

DRUGS (12)
  1. CIMZIA [Suspect]
     Active Substance: CERTOLIZUMAB PEGOL
     Indication: Rheumatoid arthritis
     Dosage: 200 MILLIGRAM, EV 2 WEEKS(QOW)
     Route: 058
     Dates: start: 202108
  2. CENTRUM SILVER [ASCORBIC ACID;BETACAROTENE;BIOTIN;CALCIUM;CHROMIUM;COL [Concomitant]
     Indication: Product used for unknown indication
     Dosage: UNK
  3. COD LIVER OIL [Concomitant]
     Active Substance: COD LIVER OIL
     Indication: Product used for unknown indication
     Dosage: UNK
  4. GLUCOSAMINE CHONDROITIN [CHONDROITIN SULFATE;GLUCOSAMINE] [Concomitant]
     Indication: Product used for unknown indication
     Dosage: UNK
  5. LORATADINE [Concomitant]
     Active Substance: LORATADINE
     Indication: Product used for unknown indication
     Dosage: UNK
  6. OLEA EUROPAEA LEAF [Concomitant]
     Active Substance: OLEA EUROPAEA LEAF
     Indication: Product used for unknown indication
     Dosage: UNK
  7. TUMS [Concomitant]
     Active Substance: CALCIUM CARBONATE
     Indication: Product used for unknown indication
     Dosage: UNK
  8. HERBALS\TURMERIC [Concomitant]
     Active Substance: HERBALS\TURMERIC
     Indication: Product used for unknown indication
     Dosage: UNK
  9. TYLENOL [Concomitant]
     Active Substance: ACETAMINOPHEN
     Indication: Product used for unknown indication
     Dosage: UNK
  10. VITAMIN C [Concomitant]
     Active Substance: ASCORBIC ACID
     Indication: Product used for unknown indication
     Dosage: UNK
  11. VITAMIN D3 [Concomitant]
     Active Substance: CHOLECALCIFEROL
     Indication: Product used for unknown indication
     Dosage: UNK
  12. ZINC [Concomitant]
     Active Substance: ZINC
     Indication: Product used for unknown indication
     Dosage: UNK

REACTIONS (4)
  - Swelling [Unknown]
  - Dry skin [Unknown]
  - Injection site bruising [Unknown]
  - Injection site haemorrhage [Unknown]
